FAERS Safety Report 10751606 (Version 1)
Quarter: 2015Q1

REPORT INFORMATION
  Report Type: Report from Study
  Country: CA (occurrence: CA)
  Receive Date: 20150130
  Receipt Date: 20150130
  Transmission Date: 20150721
  Serious: Yes (Other)
  Sender: FDA-Public Use
  Company Number: CA-ABBVIE-15K-028-1338229-00

PATIENT
  Sex: Male

DRUGS (2)
  1. HUMIRA [Suspect]
     Active Substance: ADALIMUMAB
     Indication: CROHN^S DISEASE
     Route: 058
     Dates: start: 20100313
  2. VITAMIN B12 [Concomitant]
     Active Substance: CYANOCOBALAMIN
     Indication: ANAEMIA
     Route: 030
     Dates: start: 2007

REACTIONS (4)
  - Haemorrhage [Not Recovered/Not Resolved]
  - Anaemia [Recovering/Resolving]
  - Depression [Not Recovered/Not Resolved]
  - Blood count abnormal [Recovering/Resolving]

NARRATIVE: CASE EVENT DATE: 2014
